FAERS Safety Report 5414399-0 (Version None)
Quarter: 2007Q3

REPORT INFORMATION
  Report Type: 
  Country: None (occurrence: None)
  Receive Date: 20070731
  Receipt Date: 20070524
  Transmission Date: 20080115
  Serious: No
  Sender: FDA-Public Use
  Company Number: US200705006563

PATIENT
  Age: 55 Year
  Sex: Male
  Weight: 67.1 kg

DRUGS (3)
  1. BYETTA [Suspect]
     Indication: TYPE 2 DIABETES MELLITUS
     Dosage: 5 UG, 2/D, SUBCUTANEOUS, 10 UG, 2/D, SUBCUTANEOUS
     Route: 058
     Dates: start: 20061201, end: 20070101
  2. BYETTA [Suspect]
     Indication: TYPE 2 DIABETES MELLITUS
     Dosage: 5 UG, 2/D, SUBCUTANEOUS, 10 UG, 2/D, SUBCUTANEOUS
     Route: 058
     Dates: start: 20070101
  3. EXANATIDE 10 MCG PEN, DISPOSABLE DEVICE (EXANATIDE PEN (10MCG)) PEN,DI [Concomitant]

REACTIONS (12)
  - ABDOMINAL PAIN [None]
  - BLOOD CREATINE PHOSPHOKINASE INCREASED [None]
  - BLOOD SODIUM DECREASED [None]
  - BREATH ODOUR [None]
  - CHOLECYSTITIS [None]
  - CONSTIPATION [None]
  - CREATININE URINE INCREASED [None]
  - DIARRHOEA [None]
  - DIARRHOEA HAEMORRHAGIC [None]
  - MALAISE [None]
  - WEIGHT DECREASED [None]
  - WEIGHT INCREASED [None]
